FAERS Safety Report 9178377 (Version 1)
Quarter: 2013Q1

REPORT INFORMATION
  Report Type: Spontaneous
  Country: US (occurrence: US)
  Receive Date: 20130321
  Receipt Date: 20130321
  Transmission Date: 20140127
  Serious: Yes (Hospitalization)
  Sender: FDA-Public Use
  Company Number: US-BAYER-2013-032402

PATIENT
  Age: 23 Year
  Sex: Female
  Weight: 102.4 kg

DRUGS (5)
  1. YASMIN [Suspect]
  2. DURATUSS [Concomitant]
     Dosage: CR 600-120 BID
  3. BIAXIN XL [Concomitant]
     Dosage: 500 MG, BID
  4. ZITHROMAX [Concomitant]
     Dosage: 500 MG, UNK
  5. ANTIBIOTICS [Concomitant]

REACTIONS (1)
  - Pulmonary embolism [None]
